FAERS Safety Report 7346941-7 (Version None)
Quarter: 2011Q1

REPORT INFORMATION
  Report Type: 
  Country: None (occurrence: None)
  Receive Date: 20110311
  Receipt Date: 20110301
  Transmission Date: 20110831
  Serious: Yes (Other)
  Sender: FDA-Public Use
  Company Number: SE-JNJFOC-20110301633

PATIENT
  Age: 3 Decade
  Sex: Female

DRUGS (4)
  1. REMICADE [Suspect]
     Dosage: 3RD INFUSION
     Route: 042
  2. IMUREL [Concomitant]
     Route: 065
  3. REMICADE [Suspect]
     Indication: COLITIS ULCERATIVE
     Dosage: 1-2 INFUSIONS
     Route: 042
  4. ASACOL [Concomitant]
     Route: 065

REACTIONS (1)
  - EPISTAXIS [None]
